FAERS Safety Report 13467607 (Version 1)
Quarter: 2017Q2

REPORT INFORMATION
  Report Type: Spontaneous
  Country: US (occurrence: US)
  Receive Date: 20170421
  Receipt Date: 20170421
  Transmission Date: 20170830
  Serious: Yes (Hospitalization, Other)
  Sender: FDA-Public Use
  Company Number: US-SA-2017SA068157

PATIENT
  Age: 63 Year
  Sex: Female
  Weight: 62.6 kg

DRUGS (5)
  1. PLAVIX [Suspect]
     Active Substance: CLOPIDOGREL BISULFATE
     Route: 065
  2. WARFARIN [Suspect]
     Active Substance: WARFARIN
     Indication: SURGERY
     Dosage: DOSE- 2-4 MG?DAILY DOSE 2-4 MG
     Route: 065
  3. PRASUGREL. [Suspect]
     Active Substance: PRASUGREL
     Route: 065
     Dates: end: 20160702
  4. ASPIRIN. [Suspect]
     Active Substance: ASPIRIN
     Route: 065
  5. REPATHA [Suspect]
     Active Substance: EVOLOCUMAB
     Indication: HYPERCHOLESTEROLAEMIA
     Dosage: DOSE:140 MILLIGRAM(S)/MILLILITRE
     Route: 058
     Dates: start: 20160629

REACTIONS (6)
  - Stent placement [Unknown]
  - Acute myocardial infarction [Unknown]
  - Cardiac failure congestive [Unknown]
  - Device failure [Unknown]
  - Anaemia [Recovered/Resolved]
  - Gastrointestinal haemorrhage [Recovered/Resolved]

NARRATIVE: CASE EVENT DATE: 20160630
